FAERS Safety Report 8232596-6 (Version None)
Quarter: 2012Q1

REPORT INFORMATION
  Report Type: 
  Country: None (occurrence: None)
  Receive Date: 20120323
  Receipt Date: 20120321
  Transmission Date: 20120608
  Serious: Yes (Death)
  Sender: FDA-Public Use
  Company Number: DE-B.I. PHARMACEUTICALS,INC./RIDGEFIELD-2012-DE-00812DE

PATIENT
  Sex: Male

DRUGS (12)
  1. ESBRIET [Concomitant]
     Indication: PULMONARY FIBROSIS
     Dosage: 2403 MG
  2. PREDNISOLON ACIS [Concomitant]
     Dosage: 15 MG
  3. NAPROXEN HEXAL [Concomitant]
     Dosage: 1250 MG
  4. CALCICARE D3 FORTE ORION PHARMA [Concomitant]
     Dosage: 2 ANZ
  5. PRADAXA [Suspect]
     Indication: ATRIAL FIBRILLATION
     Dosage: 300 MG
     Dates: start: 20111201, end: 20120301
  6. PANTOPRAZOL 1A PHARMA [Concomitant]
     Dosage: 80 MG
  7. FLECAINID ISIS [Concomitant]
     Dosage: 300 MG
  8. BISOPROLOL 1A PHARMA [Concomitant]
     Dosage: 10 MG
  9. METAMIZOL TROPFENIA PHARMA [Concomitant]
     Dosage: 120 ANZ
  10. TARGIN MUNDIPHARMA [Concomitant]
     Dosage: 2 ANZ
  11. GABAPENTIN [Concomitant]
     Dosage: 1200 MG
  12. CODEINTROPFEN [Concomitant]
     Dosage: 30 ANZ

REACTIONS (2)
  - PULMONARY FIBROSIS [None]
  - FIBROSIS [None]
